FAERS Safety Report 8594942-3 (Version None)
Quarter: 2012Q3

REPORT INFORMATION
  Report Type: 
  Country: None (occurrence: None)
  Receive Date: 20120815
  Receipt Date: 20120801
  Transmission Date: 20120928
  Serious: No
  Sender: FDA-Public Use
  Company Number: US-B.I. PHARMACEUTICALS,INC./RIDGEFIELD-2012-BP-17352BP

PATIENT
  Age: 2 Year
  Sex: Male
  Weight: 18 kg

DRUGS (1)
  1. SPIRIVA [Suspect]
     Route: 048
     Dates: start: 20120801, end: 20120801

REACTIONS (1)
  - INCORRECT ROUTE OF DRUG ADMINISTRATION [None]
